FAERS Safety Report 10513253 (Version 1)
Quarter: 2014Q4

REPORT INFORMATION
  Report Type: Spontaneous
  Country: GB (occurrence: GB)
  Receive Date: 20141013
  Receipt Date: 20141013
  Transmission Date: 20150528
  Serious: Yes (Other)
  Sender: FDA-Public Use
  Company Number: GB-AUROBINDO-AUR-APL-2014-10610

PATIENT
  Age: 39 Year
  Sex: Male

DRUGS (6)
  1. RISPERIDONE FILM-COATED TABLETS 2 MG [Suspect]
     Active Substance: RISPERIDONE
     Indication: SCHIZOPHRENIA
     Dosage: 2 MG, ONCE A DAY
     Route: 048
     Dates: start: 20140807
  2. RISPERIDONE FILM-COATED TABLETS 2 MG [Suspect]
     Active Substance: RISPERIDONE
     Dosage: 6 MG, UNK
     Route: 048
  3. XEPLION                            /05724802/ [Suspect]
     Active Substance: PALIPERIDONE PALMITATE
     Dosage: 100 MG, UNK
     Route: 030
     Dates: start: 20140911, end: 20140911
  4. RISPERIDONE FILM-COATED TABLETS 2 MG [Suspect]
     Active Substance: RISPERIDONE
     Dosage: 4 MG, ONCE A DAY
     Route: 048
     Dates: start: 20140911
  5. RISPERIDONE FILM-COATED TABLETS 2 MG [Suspect]
     Active Substance: RISPERIDONE
     Dosage: 4 MG, UNK
     Route: 048
     Dates: end: 20140904
  6. XEPLION                            /05724802/ [Suspect]
     Active Substance: PALIPERIDONE PALMITATE
     Indication: SCHIZOPHRENIA
     Dosage: 150 MG, UNK
     Route: 030
     Dates: start: 20140904, end: 20140904

REACTIONS (2)
  - Malaise [Recovering/Resolving]
  - Schizophrenia [Recovering/Resolving]

NARRATIVE: CASE EVENT DATE: 20140911
